FAERS Safety Report 8366090-9 (Version None)
Quarter: 2012Q2

REPORT INFORMATION
  Report Type: 
  Country: None (occurrence: None)
  Receive Date: 20120515
  Receipt Date: 20120502
  Transmission Date: 20120825
  Serious: Yes (Other)
  Sender: FDA-Public Use
  Company Number: 2012-1783

PATIENT
  Sex: Female

DRUGS (7)
  1. LIPITOR [Concomitant]
  2. DYSPORT [Suspect]
     Indication: SKIN WRINKLING
     Dosage: 50 UNITS (50 UNITS, SINGLE CYCLE), 50 UNITS (50 UNITS, SINGLE CYCLE)
     Dates: start: 20120222, end: 20120222
  3. DYSPORT [Suspect]
     Indication: OFF LABEL USE
     Dosage: 50 UNITS (50 UNITS, SINGLE CYCLE), 50 UNITS (50 UNITS, SINGLE CYCLE)
     Dates: start: 20120222, end: 20120222
  4. DYSPORT [Suspect]
     Indication: SKIN WRINKLING
     Dosage: 50 UNITS (50 UNITS, SINGLE CYCLE), 50 UNITS (50 UNITS, SINGLE CYCLE)
     Dates: start: 20110810, end: 20110810
  5. DYSPORT [Suspect]
     Indication: OFF LABEL USE
     Dosage: 50 UNITS (50 UNITS, SINGLE CYCLE), 50 UNITS (50 UNITS, SINGLE CYCLE)
     Dates: start: 20110810, end: 20110810
  6. YAZ [Concomitant]
  7. PERLANE (HYALURONIC ACID) [Concomitant]

REACTIONS (6)
  - EYE INFECTION [None]
  - VISION BLURRED [None]
  - EYE PAIN [None]
  - DEFORMITY OF ORBIT [None]
  - MULTIPLE SCLEROSIS [None]
  - EYE SWELLING [None]
